FAERS Safety Report 22109412 (Version 1)
Quarter: 2023Q1

REPORT INFORMATION
  Report Type: Spontaneous
  Country: GB (occurrence: GB)
  Receive Date: 20230317
  Receipt Date: 20230317
  Transmission Date: 20230417
  Serious: Yes (Other)
  Sender: FDA-Public Use
  Company Number: GB-MHRA-MED-202303081517293820-ZVNHS

PATIENT
  Age: 40 Year
  Sex: Female
  Weight: 109 kg

DRUGS (2)
  1. OLANZAPINE [Suspect]
     Active Substance: OLANZAPINE
     Indication: Psychotic disorder
     Dosage: 5 MG, DAILY (AT NIGHT)
     Route: 065
     Dates: start: 20230227, end: 20230302
  2. SANDO K [POTASSIUM BICARBONATE;POTASSIUM CHLO [Concomitant]
     Indication: Hypokalaemia
     Dosage: UNK
     Dates: start: 20230224, end: 20230226

REACTIONS (1)
  - Neutropenia [Recovered/Resolved]

NARRATIVE: CASE EVENT DATE: 20230303
